FAERS Safety Report 4961598-8 (Version None)
Quarter: 2006Q1

REPORT INFORMATION
  Report Type: 
  Country: None (occurrence: None)
  Receive Date: 20060201
  Receipt Date: 20051025
  Transmission Date: 20060701
  Serious: No
  Sender: FDA-Public Use
  Company Number: 2005PV003911

PATIENT
  Age: 65 Year
  Sex: Female
  Weight: 131.5431 kg

DRUGS (9)
  1. BYETTA [Suspect]
     Indication: DIABETES MELLITUS NON-INSULIN-DEPENDENT
     Dosage: SEE IMAGE
     Route: 058
     Dates: start: 20050901, end: 20051001
  2. BYETTA [Suspect]
     Indication: DIABETES MELLITUS NON-INSULIN-DEPENDENT
     Dosage: SEE IMAGE
     Route: 058
     Dates: start: 20051015
  3. GLYBURIDE [Concomitant]
  4. HUMULIN N [Concomitant]
  5. HUMALOG [Concomitant]
  6. COMPOUND THYROID [Concomitant]
  7. OMEGA 3 [Concomitant]
  8. VITAMINS [Concomitant]
  9. HORMONE CREAM [Concomitant]

REACTIONS (2)
  - BLOOD GLUCOSE INCREASED [None]
  - WEIGHT DECREASED [None]
